FAERS Safety Report 7126365-8 (Version None)
Quarter: 2010Q4

REPORT INFORMATION
  Report Type: 
  Country: None (occurrence: None)
  Receive Date: 20101112
  Receipt Date: 20101028
  Transmission Date: 20110411
  Serious: Yes (Other)
  Sender: FDA-Public Use
  Company Number: AUR-APL-2010-02660

PATIENT
  Sex: Male

DRUGS (4)
  1. HYDROCHLOROTHIAZIDE [Suspect]
  2. LAMOTRIGINE [Suspect]
     Indication: BIPOLAR DISORDER
  3. FLOMAX [Suspect]
  4. DIOVAN [Suspect]

REACTIONS (6)
  - ANGER [None]
  - ANXIETY [None]
  - CONDITION AGGRAVATED [None]
  - DYSPNOEA [None]
  - HEART RATE IRREGULAR [None]
  - TENSION [None]
